FAERS Safety Report 21170001 (Version 2)
Quarter: 2022Q3

REPORT INFORMATION
  Report Type: Spontaneous
  Country: US (occurrence: US)
  Receive Date: 20220804
  Receipt Date: 20220911
  Transmission Date: 20221027
  Serious: No
  Sender: FDA-Public Use
  Company Number: US-JNJFOC-20220753957

PATIENT
  Sex: Male

DRUGS (3)
  1. ZYTIGA [Suspect]
     Active Substance: ABIRATERONE ACETATE
     Indication: Neoplasm malignant
     Dosage: 6 PILLS ONCE A DAY
     Route: 048
     Dates: start: 2016
  2. ZYTIGA [Suspect]
     Active Substance: ABIRATERONE ACETATE
     Dosage: 4 PILLS ONCE A DAY
     Route: 048
  3. LUPRON [Concomitant]
     Active Substance: LEUPROLIDE ACETATE

REACTIONS (4)
  - Off label use [Unknown]
  - Prostatic specific antigen increased [Recovered/Resolved]
  - Product dose omission issue [Unknown]
  - Product use issue [Unknown]
